FAERS Safety Report 5662015-5 (Version None)
Quarter: 2008Q1

REPORT INFORMATION
  Report Type: 
  Country: None (occurrence: None)
  Receive Date: 20080206
  Receipt Date: 20071031
  Transmission Date: 20080703
  Serious: Yes (Hospitalization)
  Sender: FDA-Public Use
  Company Number: WAES 0711USA06700

PATIENT

DRUGS (2)
  1. JANUMET [Suspect]
     Indication: DIABETES MELLITUS
     Dosage: PO
     Route: 048
     Dates: end: 20070101
  2. JANUVIA [Concomitant]

REACTIONS (2)
  - ADVERSE EVENT [None]
  - CREATININE RENAL CLEARANCE DECREASED [None]
